FAERS Safety Report 6648193-X (Version None)
Quarter: 2010Q1

REPORT INFORMATION
  Report Type: 
  Country: None (occurrence: None)
  Receive Date: 20100319
  Receipt Date: 20100304
  Transmission Date: 20100710
  Serious: Yes (Hospitalization)
  Sender: FDA-Public Use
  Company Number: 232301J10USA

PATIENT
  Age: 51 Year
  Sex: Female

DRUGS (8)
  1. REBIF [Suspect]
     Indication: MULTIPLE SCLEROSIS
     Dosage: 44 MCG, 3 IN 1 WEEKS, SUBCUTANEOUS
     Route: 058
     Dates: start: 20091126
  2. GABAPENTIN [Concomitant]
  3. PROPRANOLOL [Concomitant]
  4. VITAMIN B12 [Concomitant]
  5. OMEPRAZOLE [Concomitant]
  6. SERTRALINE HYDROCHLOROTHIAZIDE (SERTRALINE HYDROCHLORIDE) [Concomitant]
  7. ALPRAZOLAM [Concomitant]
  8. MAXAULT (RIZATRIPTAN) [Concomitant]

REACTIONS (3)
  - NASOPHARYNGITIS [None]
  - PNEUMONIA [None]
  - THYROIDITIS [None]
